FAERS Safety Report 8834583 (Version 1)
Quarter: 2012Q4

REPORT INFORMATION
  Report Type: 
  Country: FR (occurrence: FR)
  Receive Date: 20121010
  Receipt Date: 20121010
  Transmission Date: 20130627
  Serious: Yes (Hospitalization)
  Sender: FDA-Public Use
  Company Number: FR-PFIZER INC-2012246922

PATIENT
  Age: 81 Year
  Sex: Female

DRUGS (10)
  1. TAHOR [Suspect]
     Indication: HYPERCHOLESTEROLAEMIA
     Dosage: 10 mg, 1x/day
     Route: 048
  2. PREVISCAN [Interacting]
     Indication: PROPHYLAXIS
     Dosage: 20 mg, 1x/day
     Route: 048
     Dates: end: 20120802
  3. RULID [Interacting]
     Indication: ERYSIPELAS
     Dosage: 150 mg, 1x/day
     Route: 048
     Dates: start: 201207, end: 20120803
  4. PLAVIX [Interacting]
     Indication: PROPHYLAXIS
     Dosage: 1 DF, 1x/day
     Route: 048
  5. CORTANCYL [Interacting]
     Indication: POLYMYALGIA RHEUMATICA
     Dosage: 5 mg, 1x/day
     Route: 048
  6. MOTILIUM [Concomitant]
     Indication: NAUSEA
     Dosage: UNK
     Route: 048
     Dates: end: 20120803
  7. COVERSYL [Concomitant]
     Indication: HYPERTENSION
     Dosage: 10 mg, 1x/day
     Route: 048
     Dates: end: 20120803
  8. ISOPTIN [Concomitant]
  9. INSPRA [Concomitant]
  10. INEXIUM [Concomitant]
     Dosage: 20 mg, UNK

REACTIONS (7)
  - Drug interaction [Recovered/Resolved]
  - Haematoma [Recovered/Resolved]
  - Fall [Unknown]
  - Anaemia [Recovering/Resolving]
  - Hypokinesia [Recovering/Resolving]
  - International normalised ratio increased [Unknown]
  - Presyncope [None]
